FAERS Safety Report 9284080 (Version 3)
Quarter: 2013Q2

REPORT INFORMATION
  Report Type: Report from Study
  Country: AU (occurrence: AU)
  Receive Date: 20130510
  Receipt Date: 20130606
  Transmission Date: 20140414
  Serious: Yes (Death, Other)
  Sender: FDA-Public Use
  Company Number: PHHY2013AU046648

PATIENT
  Sex: Female
  Weight: 58 kg

DRUGS (18)
  1. ACLASTA [Suspect]
     Dosage: 5 MG
     Route: 042
     Dates: start: 20091029
  2. ACLASTA [Suspect]
     Dosage: 5 MG
     Route: 042
     Dates: start: 20101117
  3. ACLASTA [Suspect]
     Dosage: 5 MG
     Route: 042
     Dates: start: 20120328
  4. DIAZEPAM [Concomitant]
     Dosage: 5 MG, UNK
     Route: 048
  5. ENDONE [Concomitant]
     Dosage: 5 MG, UNK
  6. FLAGYL [Concomitant]
     Dosage: 4 MG, 1 TDS UNTILL FINISHED
  7. LASIX [Concomitant]
     Dosage: 40 MG, 1 TO 2 DAILY
  8. MYLANTA P [Concomitant]
     Dosage: 500 ML, 20 ML TDS
  9. ENDEP [Concomitant]
     Dosage: 10 MG, 1 NOCTE AT 8 PM
  10. NEO B12 [Concomitant]
     Dosage: 1000 UG/ML, UNK
  11. NITROLINGUAL-SPRAY [Concomitant]
     Dosage: 400 UG PER DOSE, 200 DOSES
  12. OXYCONTIN [Concomitant]
     Dosage: 30 MG, BID
  13. PLAVIX [Concomitant]
     Dosage: 75 MG, DAILY
  14. PROGYNOVA [Concomitant]
     Dosage: 1 MG, DAILY
  15. SLOW K [Concomitant]
     Dosage: 600 MG,
  16. SODIUM CHLORIDE [Concomitant]
     Dosage: 600 MG, 12 PER DAY
     Route: 048
  17. SODIUM VALPROATE [Concomitant]
     Dosage: 500 MG, UNK
  18. THYROXINE SODIUM [Concomitant]
     Dosage: 50 UG, DAILY
     Route: 048

REACTIONS (24)
  - Encephalitis [Fatal]
  - Pneumonia [Fatal]
  - Bacteraemia [Fatal]
  - Short-bowel syndrome [Fatal]
  - Osteomyelitis [Fatal]
  - Ulcer [Fatal]
  - Bipolar disorder [Fatal]
  - Cerebrovascular accident [Fatal]
  - Myocardial ischaemia [Unknown]
  - Angina pectoris [Unknown]
  - Transient ischaemic attack [Unknown]
  - Glaucoma [Unknown]
  - Macular degeneration [Unknown]
  - Iron deficiency [Unknown]
  - Depression [Unknown]
  - Joint injury [Unknown]
  - Oedema [Unknown]
  - Limb injury [Unknown]
  - Grief reaction [Unknown]
  - Anxiety [Unknown]
  - Gastritis [Unknown]
  - Arthritis [Unknown]
  - Hypertension [Unknown]
  - Pain [Unknown]
